FAERS Safety Report 11657953 (Version 1)
Quarter: 2015Q4

REPORT INFORMATION
  Report Type: Report from Study
  Country: US (occurrence: US)
  Receive Date: 20151023
  Receipt Date: 20151023
  Transmission Date: 20160304
  Serious: No
  Sender: FDA-Public Use
  Company Number: US-ABBVIE-15P-163-1483276-00

PATIENT
  Age: 46 Year
  Sex: Female

DRUGS (2)
  1. LUPRON DEPOT [Suspect]
     Active Substance: LEUPROLIDE ACETATE
     Indication: UTERINE LEIOMYOMA
     Route: 065
     Dates: start: 20150811
  2. CLINDAMYCIN [Concomitant]
     Active Substance: CLINDAMYCIN\CLINDAMYCIN PHOSPHATE
     Indication: ACNE
     Route: 061

REACTIONS (1)
  - Breast enlargement [Not Recovered/Not Resolved]

NARRATIVE: CASE EVENT DATE: 20150921
